FAERS Safety Report 18311755 (Version 2)
Quarter: 2021Q4

REPORT INFORMATION
  Report Type: Spontaneous
  Country: GB (occurrence: GB)
  Receive Date: 20200925
  Receipt Date: 20211117
  Transmission Date: 20220303
  Serious: Yes (Death, Hospitalization, Other)
  Sender: FDA-Public Use
  Company Number: None

PATIENT
  Age: 40 Year
  Sex: Male

DRUGS (11)
  1. PREDNISOLONE [Suspect]
     Active Substance: PREDNISOLONE
     Indication: Inflammatory myofibroblastic tumour
     Dosage: UNK
     Route: 065
  2. PREDNISOLONE [Suspect]
     Active Substance: PREDNISOLONE
     Indication: Condition aggravated
     Dosage: 100 MILLIGRAM PER DAY
     Route: 048
  3. PREDNISOLONE [Suspect]
     Active Substance: PREDNISOLONE
     Dosage: 50 MILLIGRAM, DAILY
     Route: 065
  4. PREDNISOLONE [Suspect]
     Active Substance: PREDNISOLONE
     Dosage: UNK
     Route: 065
  5. LORLATINIB [Suspect]
     Active Substance: LORLATINIB
     Indication: Inflammatory myofibroblastic tumour
     Dosage: 100 MILLIGRAM PER DAY
     Route: 048
  6. ETOPOSIDE [Suspect]
     Active Substance: ETOPOSIDE
     Indication: Inflammatory myofibroblastic tumour
     Dosage: UNK
     Route: 065
  7. ETOPOSIDE [Suspect]
     Active Substance: ETOPOSIDE
     Dosage: UNK UNK, CYCLICAL
     Route: 065
  8. BRIGATINIB [Suspect]
     Active Substance: BRIGATINIB
     Indication: Inflammatory myofibroblastic tumour
     Dosage: 100 MILLIGRAM PER DAY
     Route: 048
  9. IFOSFAMIDE [Suspect]
     Active Substance: IFOSFAMIDE
     Indication: Inflammatory myofibroblastic tumour
     Dosage: UNK UNK, CYCLICAL (FOUR CYCLE)
     Route: 065
  10. ENTRECTINIB [Concomitant]
     Active Substance: ENTRECTINIB
     Indication: Inflammatory myofibroblastic tumour
     Dosage: UNK
     Route: 065
  11. ENTRECTINIB [Concomitant]
     Active Substance: ENTRECTINIB
     Dosage: UNK (STARTRK-2 TRIAL)
     Route: 065

REACTIONS (6)
  - Malignant neoplasm progression [Fatal]
  - Metastases to muscle [Fatal]
  - Metastases to adrenals [Fatal]
  - Metastases to lung [Fatal]
  - Condition aggravated [Fatal]
  - Drug ineffective [Unknown]
